FAERS Safety Report 19154723 (Version 1)
Quarter: 2021Q2

REPORT INFORMATION
  Report Type: Spontaneous
  Country: FR (occurrence: FR)
  Receive Date: 20210419
  Receipt Date: 20210419
  Transmission Date: 20210717
  Serious: Yes (Death)
  Sender: FDA-Public Use
  Company Number: FR-MYLANLABS-2021M1022601

PATIENT
  Age: 14 Year
  Sex: Male

DRUGS (1)
  1. TRAMADOL. [Suspect]
     Active Substance: TRAMADOL
     Indication: PRODUCT USED FOR UNKNOWN INDICATION
     Dosage: BETWEEN 1.6 G AND 2 G
     Route: 048
     Dates: start: 202011, end: 202011

REACTIONS (4)
  - Pulmonary oedema [Fatal]
  - Cardiomegaly [Fatal]
  - Brain oedema [Fatal]
  - Drug abuse [Fatal]

NARRATIVE: CASE EVENT DATE: 202011
